FAERS Safety Report 4603116-X (Version None)
Quarter: 2005Q1

REPORT INFORMATION
  Report Type: 
  Country: None (occurrence: None)
  Receive Date: 20050309
  Receipt Date: 20050222
  Transmission Date: 20050727
  Serious: Yes (Hospitalization)
  Sender: FDA-Public Use
  Company Number: A0546831A

PATIENT
  Age: 44 Year
  Sex: Female
  Weight: 50 kg

DRUGS (4)
  1. NICODERM CQ [Suspect]
     Route: 062
     Dates: start: 20020201, end: 20020101
  2. OVRAL [Concomitant]
  3. ZYRTEC [Concomitant]
  4. DOXYCYCLINE [Concomitant]

REACTIONS (7)
  - APPLICATION SITE DERMATITIS [None]
  - DIVERTICULITIS [None]
  - FOAMING AT MOUTH [None]
  - MUSCLE SPASMS [None]
  - RECTAL DISCHARGE [None]
  - VOMITING [None]
  - WHITE BLOOD CELL COUNT INCREASED [None]
